FAERS Safety Report 8830825 (Version 1)
Quarter: 2012Q4

REPORT INFORMATION
  Report Type: 
  Country: US (occurrence: US)
  Receive Date: 20121009
  Receipt Date: 20121009
  Transmission Date: 20130627
  Serious: No
  Sender: FDA-Public Use
  Company Number: US-PFIZER INC-2012247788

PATIENT
  Age: 26 Year
  Sex: Female
  Weight: 80.73 kg

DRUGS (2)
  1. ADVIL CONGESTION RELIEF [Suspect]
     Indication: NASAL CONGESTION
     Dosage: 200/10 mg, every 4 hours
     Route: 048
     Dates: start: 201209, end: 201209
  2. PATANASE [Concomitant]
     Indication: HYPERSENSITIVITY
     Dosage: UNK, daily

REACTIONS (1)
  - Drug ineffective [Unknown]
